FAERS Safety Report 13403546 (Version 4)
Quarter: 2017Q2

REPORT INFORMATION
  Report Type: Report from Study
  Country: FR (occurrence: FR)
  Receive Date: 20170405
  Receipt Date: 20170601
  Transmission Date: 20170830
  Serious: Yes (Death, Hospitalization, Other)
  Sender: FDA-Public Use
  Company Number: FR-PFIZER INC-2017140988

PATIENT
  Age: 67 Year
  Sex: Female
  Weight: 50 kg

DRUGS (15)
  1. BIONOLYTE (DEXTROSE\POTASSIUM CHLORIDE\SODIUM CHLORIDE [Concomitant]
     Active Substance: DEXTROSE\POTASSIUM CHLORIDE\SODIUM CHLORIDE
     Indication: NUTRITIONAL SUPPLEMENTATION
     Dosage: 1 L, DAILY
     Route: 042
     Dates: start: 20170127
  2. ALPRAZOLAM. [Concomitant]
     Active Substance: ALPRAZOLAM
     Indication: ANXIETY
     Dosage: 0.5 MG, DAILY
     Route: 048
     Dates: start: 20170124
  3. LORMETAZEPAM [Concomitant]
     Active Substance: LORMETAZEPAM
     Indication: SLEEP DISORDER
     Dosage: UNK UNK, 2X/DAY
     Route: 048
     Dates: start: 20170123
  4. PRIMPERAN [Concomitant]
     Active Substance: METOCLOPRAMIDE HYDROCHLORIDE
     Indication: NAUSEA
     Dosage: 1 DF (TABLET), 3X/DAY
     Route: 048
     Dates: start: 20170123, end: 20170127
  5. PRIMPERAN [Concomitant]
     Active Substance: METOCLOPRAMIDE HYDROCHLORIDE
     Indication: VOMITING
  6. METHYLPREDNISOLONE. [Concomitant]
     Active Substance: METHYLPREDNISOLONE
     Indication: STEROID THERAPY
     Dosage: 3 DF IN THE MORNING AND 2 DF AT NOON
     Route: 042
     Dates: start: 20170127
  7. ESIDREX [Concomitant]
     Active Substance: HYDROCHLOROTHIAZIDE
     Indication: HEPATIC FAILURE
     Dosage: 25 MG, DAILY
     Route: 048
     Dates: start: 20170124
  8. XYLOCAINE VISCOUS [Concomitant]
     Active Substance: LIDOCAINE HYDROCHLORIDE
     Indication: PAIN
     Dosage: 1 DF, 2X/DAY
     Dates: start: 20170204
  9. SCOBUREN [Concomitant]
     Active Substance: BUTYLSCOPOLAMINE
     Indication: PAIN
     Dosage: UNK UNK, 1X/DAY
     Route: 042
     Dates: start: 20170131
  10. SIROCTID [Concomitant]
     Active Substance: OCTREOTIDE ACETATE
     Dosage: 800 UG, DAILY
     Dates: start: 20170206
  11. LOVENOX [Concomitant]
     Active Substance: ENOXAPARIN SODIUM
     Indication: ANTICOAGULANT THERAPY
     Dosage: 0.4 ML, DAILY
     Route: 042
     Dates: start: 20170123
  12. LOPRIL /00498401/ [Concomitant]
     Active Substance: CAPTOPRIL
     Indication: HYPERTENSION
     Dosage: 25 MG, DAILY
     Route: 048
  13. ESCITALOPRAM [Concomitant]
     Active Substance: ESCITALOPRAM OXALATE
     Indication: DEPRESSION
     Dosage: 1 DF (TABLET), 3X/DAY
     Route: 048
     Dates: start: 200310
  14. PALBOCICLIB [Suspect]
     Active Substance: PALBOCICLIB
     Indication: BREAST CANCER
     Dosage: 125 MG, DAILY
     Route: 048
     Dates: start: 20170103, end: 20170123
  15. LARGACTIL /00011901/ [Concomitant]
     Active Substance: CHLORPROMAZINE
     Indication: NEUROLOGICAL SYMPTOM
     Dosage: UNK UNK, 1X/DAY
     Route: 042
     Dates: start: 20170131

REACTIONS (6)
  - Anaemia [Not Recovered/Not Resolved]
  - Death [Fatal]
  - Neutropenia [Unknown]
  - Thrombocytopenia [Recovered/Resolved]
  - Aspartate aminotransferase increased [Not Recovered/Not Resolved]
  - Blood creatinine decreased [Not Recovered/Not Resolved]

NARRATIVE: CASE EVENT DATE: 20170115
